FAERS Safety Report 9707708 (Version 1)
Quarter: 2013Q4

REPORT INFORMATION
  Report Type: Spontaneous
  Country: US (occurrence: US)
  Receive Date: 20131125
  Receipt Date: 20131125
  Transmission Date: 20140711
  Serious: Yes (Hospitalization, Other)
  Sender: FDA-Public Use
  Company Number: PHHY2013US131922

PATIENT
  Age: 34 Year
  Sex: Male

DRUGS (2)
  1. DOXAZOSIN [Suspect]
     Dosage: 100 DF, UNK
  2. PROPRANOLOL [Suspect]

REACTIONS (6)
  - Circulatory collapse [Recovering/Resolving]
  - Renal failure [Unknown]
  - Lethargy [Recovering/Resolving]
  - Hypotension [Recovering/Resolving]
  - Bradycardia [Recovering/Resolving]
  - Overdose [Unknown]
